FAERS Safety Report 8606669-X (Version None)
Quarter: 2012Q3

REPORT INFORMATION
  Report Type: 
  Country: None (occurrence: None)
  Receive Date: 20120809
  Receipt Date: 20120809
  Transmission Date: 20120928
  Serious: No
  Sender: FDA-Public Use
  Company Number: None

PATIENT
  Sex: Male
  Weight: 100.15 kg

DRUGS (1)
  1. ALFA 2 INTERFERON 2B (INTRON-A) 150MU [Suspect]
     Dates: start: 20111107

REACTIONS (2)
  - NEUTROPHIL COUNT DECREASED [None]
  - BLOOD CREATINE PHOSPHOKINASE INCREASED [None]
